FAERS Safety Report 5895590-6 (Version None)
Quarter: 2008Q3

REPORT INFORMATION
  Report Type: 
  Country: None (occurrence: None)
  Receive Date: 20080924
  Receipt Date: 20080320
  Transmission Date: 20090109
  Serious: Yes (Other)
  Sender: FDA-Public Use
  Company Number: US-ASTRAZENECA-2006UW08418

PATIENT
  Age: 584 Month
  Sex: Male
  Weight: 137 kg

DRUGS (3)
  1. SEROQUEL [Suspect]
     Indication: INSOMNIA
     Route: 048
     Dates: start: 20050222, end: 20060202
  2. SEROQUEL [Suspect]
     Indication: DEPRESSION
     Route: 048
     Dates: start: 20050222, end: 20060202
  3. THORAZINE [Concomitant]

REACTIONS (2)
  - DIABETES MELLITUS [None]
  - KETOACIDOSIS [None]
